FAERS Safety Report 15977222 (Version 2)
Quarter: 2019Q1

REPORT INFORMATION
  Report Type: Spontaneous
  Country: US (occurrence: US)
  Receive Date: 20190218
  Receipt Date: 20190304
  Transmission Date: 20190418
  Serious: No
  Sender: FDA-Public Use
  Company Number: US-HORIZON-PEN-0144-2019

PATIENT
  Age: 57 Year
  Sex: Male

DRUGS (3)
  1. PENNSAID [Suspect]
     Active Substance: DICLOFENAC SODIUM
     Indication: MUSCULOSKELETAL PAIN
     Dosage: 2 PUMPS TWICE DAILY
     Dates: start: 20190123, end: 20190211
  2. ASPIRIN. [Concomitant]
     Active Substance: ASPIRIN
  3. MOBIC [Concomitant]
     Active Substance: MELOXICAM

REACTIONS (5)
  - Nasopharyngitis [Recovered/Resolved]
  - Off label use [Unknown]
  - Dizziness [Recovered/Resolved]
  - Nausea [Recovered/Resolved]
  - Drug ineffective for unapproved indication [Unknown]
